FAERS Safety Report 10259292 (Version 2)
Quarter: 2014Q2

REPORT INFORMATION
  Report Type: Spontaneous
  Country: US (occurrence: US)
  Receive Date: 20140625
  Receipt Date: 20140625
  Transmission Date: 20141212
  Serious: No
  Sender: FDA-Public Use
  Company Number: US-ASTELLAS-2014US001474

PATIENT
  Sex: Female
  Weight: 54 kg

DRUGS (2)
  1. VESICARE [Suspect]
     Indication: BLADDER DISORDER
     Route: 048
  2. VESICARE [Suspect]
     Indication: URINARY INCONTINENCE

REACTIONS (1)
  - Prescribed overdose [Unknown]
